FAERS Safety Report 21393130 (Version 1)
Quarter: 2022Q3

REPORT INFORMATION
  Report Type: Spontaneous
  Country: US (occurrence: None)
  Receive Date: 20220929
  Receipt Date: 20220929
  Transmission Date: 20221026
  Serious: Yes (Disabling)
  Sender: FDA-Public Use
  Company Number: None

PATIENT
  Age: 79 Year
  Sex: Male
  Weight: 56.7 kg

DRUGS (1)
  1. CLARITHROMYCIN [Suspect]
     Active Substance: CLARITHROMYCIN
     Indication: Paranasal sinus discomfort
     Dates: start: 20211202, end: 20211225

REACTIONS (3)
  - Deafness unilateral [None]
  - Tympanic membrane perforation [None]
  - Hypoacusis [None]

NARRATIVE: CASE EVENT DATE: 20211212
